FAERS Safety Report 7054668-4 (Version None)
Quarter: 2010Q4

REPORT INFORMATION
  Report Type: 
  Country: None (occurrence: None)
  Receive Date: 20101020
  Receipt Date: 20101012
  Transmission Date: 20110411
  Serious: Yes (Hospitalization, Other)
  Sender: FDA-Public Use
  Company Number: US-PFIZER INC-2010130162

PATIENT
  Sex: Male
  Weight: 84 kg

DRUGS (2)
  1. GENOTROPIN [Suspect]
     Dosage: 0.4 MG, DAILY
     Dates: start: 19981101
  2. GENOTROPIN [Suspect]
     Dosage: 0.4 MG, 1X/DAY

REACTIONS (3)
  - BONE DISORDER [None]
  - CARDIAC DISORDER [None]
  - HAEMORRHAGE [None]
